FAERS Safety Report 8286794-6 (Version None)
Quarter: 2012Q2

REPORT INFORMATION
  Report Type: 
  Country: None (occurrence: None)
  Receive Date: 20120416
  Receipt Date: 20120404
  Transmission Date: 20120825
  Serious: Yes (Other)
  Sender: FDA-Public Use
  Company Number: ES-NOVOPROD-343133

PATIENT
  Age: 4 Year
  Sex: Female

DRUGS (3)
  1. NORDITROPIN [Suspect]
     Indication: FOETAL GROWTH RESTRICTION
     Dosage: 0.4 MG, QD
     Route: 065
     Dates: start: 20111001, end: 20120110
  2. MOTILIUM                           /00498201/ [Concomitant]
  3. NEXIUM [Concomitant]

REACTIONS (1)
  - VIITH NERVE PARALYSIS [None]
